FAERS Safety Report 11637982 (Version 1)
Quarter: 2015Q4

REPORT INFORMATION
  Report Type: Spontaneous
  Country: US (occurrence: US)
  Receive Date: 20151016
  Receipt Date: 20151016
  Transmission Date: 20160304
  Serious: No
  Sender: FDA-Public Use
  Company Number: US-INDIVIOR-RB-080940-2015

PATIENT
  Age: 24 Year
  Sex: Male

DRUGS (1)
  1. SUBOXONE [Suspect]
     Active Substance: BUPRENORPHINE HYDROCHLORIDE\NALOXONE HYDROCHLORIDE
     Indication: INSOMNIA
     Dosage: TWO FILMS ONCE
     Route: 060
     Dates: start: 20150701, end: 20150701

REACTIONS (6)
  - Somnolence [Unknown]
  - Ejaculation failure [Unknown]
  - Tachyphrenia [Unknown]
  - Erectile dysfunction [Unknown]
  - Substance abuse [Recovered/Resolved]
  - Insomnia [Unknown]

NARRATIVE: CASE EVENT DATE: 20150701
